FAERS Safety Report 17718858 (Version 1)
Quarter: 2020Q2

REPORT INFORMATION
  Report Type: Spontaneous
  Country: US (occurrence: US)
  Receive Date: 20200428
  Receipt Date: 20200428
  Transmission Date: 20200714
  Serious: No
  Sender: FDA-Public Use
  Company Number: US-ARBOR PHARMACEUTICALS, LLC-US-2019ARB001557

PATIENT
  Sex: Female

DRUGS (1)
  1. ERY-TAB [Suspect]
     Active Substance: ERYTHROMYCIN
     Indication: IMPAIRED GASTRIC EMPTYING
     Dosage: 333 MG, UNK

REACTIONS (1)
  - Off label use [Unknown]
